FAERS Safety Report 13526687 (Version 1)
Quarter: 2017Q2

REPORT INFORMATION
  Report Type: Report from Study
  Country: CA (occurrence: CA)
  Receive Date: 20170509
  Receipt Date: 20170509
  Transmission Date: 20170830
  Serious: Yes (Hospitalization)
  Sender: FDA-Public Use
  Company Number: PHHY2017CA065981

PATIENT
  Sex: Female

DRUGS (1)
  1. AFINITOR [Suspect]
     Active Substance: EVEROLIMUS
     Indication: BREAST CANCER
     Dosage: UNK
     Route: 048
     Dates: start: 201511, end: 201602

REACTIONS (10)
  - Pyrexia [Unknown]
  - Hepatic enzyme abnormal [Unknown]
  - Full blood count decreased [Unknown]
  - Influenza [Unknown]
  - Weight decreased [Unknown]
  - Decreased appetite [Unknown]
  - Haematochezia [Unknown]
  - Thrombosis [Unknown]
  - Tumour marker increased [Unknown]
  - Malaise [Unknown]
